FAERS Safety Report 12964574 (Version 1)
Quarter: 2016Q4

REPORT INFORMATION
  Report Type: Report from Study
  Country: CR (occurrence: CR)
  Receive Date: 20161122
  Receipt Date: 20161122
  Transmission Date: 20170207
  Serious: Yes (Other)
  Sender: FDA-Public Use
  Company Number: PHHY2016CR142299

PATIENT
  Age: 79 Year
  Sex: Female

DRUGS (1)
  1. EXFORGE HCT [Suspect]
     Active Substance: AMLODIPINE BESYLATE\HYDROCHLOROTHIAZIDE\VALSARTAN
     Indication: HYPERTENSION
     Dosage: 1 DF, QD (AMLODIPINE 10 MG, HYDROCHLOROTHIAZIDE 25 MG AND VALSARTAN 320 MG)
     Route: 048

REACTIONS (5)
  - Distractibility [Unknown]
  - Diabetes mellitus [Unknown]
  - Mood altered [Unknown]
  - Depression [Recovering/Resolving]
  - Memory impairment [Unknown]
